FAERS Safety Report 9320298 (Version 1)
Quarter: 2013Q2

REPORT INFORMATION
  Report Type: Spontaneous
  Country: JP (occurrence: JP)
  Receive Date: 20130530
  Receipt Date: 20130530
  Transmission Date: 20140414
  Serious: Yes (Hospitalization)
  Sender: FDA-Public Use
  Company Number: JP-009507513-1305JPN014567

PATIENT
  Sex: Male

DRUGS (6)
  1. ISENTRESS TABLETS 400MG [Suspect]
     Indication: HIV INFECTION
     Dosage: 400MG TABLET,2 DF , BID
     Route: 048
     Dates: start: 20130321, end: 20130501
  2. JANUVIA TABLETS 50MG [Suspect]
     Indication: DIABETES MELLITUS
     Dosage: 50MG TABLET,1, DAY
     Route: 048
     Dates: start: 201212, end: 20130501
  3. TRUVADA [Suspect]
     Indication: HIV INFECTION
     Dosage: 1 DF, QD
     Route: 048
     Dates: start: 20130321, end: 20130501
  4. BAKTAR [Suspect]
     Indication: PROPHYLAXIS
     Dosage: 1 DF, DAY
     Route: 048
     Dates: start: 20130220, end: 20130501
  5. ZITHROMAC [Suspect]
     Indication: OPPORTUNISTIC INFECTION PROPHYLAXIS
     Dosage: 1 DF, WEEK
     Route: 048
     Dates: start: 20130305, end: 20130501
  6. BLOPRESS [Suspect]
     Indication: HYPERTENSION
     Dosage: 1 DF, DAY
     Route: 048
     Dates: start: 201212, end: 20130501

REACTIONS (1)
  - Drug eruption [Recovering/Resolving]
